FAERS Safety Report 16470540 (Version 1)
Quarter: 2019Q2

REPORT INFORMATION
  Report Type: Spontaneous
  Country: US (occurrence: US)
  Receive Date: 20190514
  Receipt Date: 20190514
  Transmission Date: 20190711
  Serious: No
  Sender: FDA-Public Use
  Company Number: None

PATIENT
  Age: 81 Year
  Sex: Male

DRUGS (1)
  1. REMIFENTANIL [Suspect]
     Active Substance: REMIFENTANIL
     Indication: CAROTID ENDARTERECTOMY
     Route: 042
     Dates: start: 20190322, end: 20190322

REACTIONS (1)
  - Cardiac arrest [None]

NARRATIVE: CASE EVENT DATE: 20190322
